FAERS Safety Report 10097881 (Version 1)
Quarter: 2014Q2

REPORT INFORMATION
  Report Type: Spontaneous
  Country: US (occurrence: US)
  Receive Date: 20140423
  Receipt Date: 20140423
  Transmission Date: 20141212
  Serious: No
  Sender: FDA-Public Use
  Company Number: US-BIOGENIDEC-2014BI035770

PATIENT
  Age: 57 Year
  Sex: Male

DRUGS (4)
  1. TECFIDERA [Suspect]
     Indication: MULTIPLE SCLEROSIS
     Route: 048
     Dates: start: 20130522
  2. CYCLOBENZAPRINE [Concomitant]
  3. CELEBREX [Concomitant]
  4. HYDROCODONE [Concomitant]

REACTIONS (5)
  - Urinary tract infection [Unknown]
  - Ocular hyperaemia [Unknown]
  - Eye pain [Unknown]
  - Fatigue [Unknown]
  - Flushing [Unknown]
